FAERS Safety Report 4315662-7 (Version None)
Quarter: 2004Q1

REPORT INFORMATION
  Report Type: 
  Country: None (occurrence: None)
  Receive Date: 20040310
  Receipt Date: 20040310
  Transmission Date: 20041129
  Serious: Yes (Hospitalization)
  Sender: FDA-Public Use
  Company Number: None

PATIENT
  Age: 60 Year
  Sex: Female
  Weight: 61.2356 kg

DRUGS (9)
  1. TARCEVA (DSI-774) [Suspect]
     Indication: PANCREATIC CARCINOMA METASTATIC
     Dosage: 150 MG/DAY PO
     Route: 048
     Dates: start: 20031217
  2. CAPECITABINE [Suspect]
     Indication: PANCREATIC CARCINOMA METASTATIC
     Dosage: 500 MG/M2 Q 12 HRS PO
     Route: 048
     Dates: start: 20031217
  3. KLONOPIN [Concomitant]
  4. OXYCODONE [Concomitant]
  5. MEGACE [Concomitant]
  6. ATIVAN [Concomitant]
  7. OXYCONTIN [Concomitant]
  8. NEXIUM [Concomitant]
  9. FRAGMIN [Concomitant]

REACTIONS (4)
  - CHILLS [None]
  - DIARRHOEA [None]
  - DIZZINESS [None]
  - MYOCLONUS [None]
